FAERS Safety Report 10539010 (Version 2)
Quarter: 2014Q4

REPORT INFORMATION
  Report Type: Spontaneous
  Country: US (occurrence: US)
  Receive Date: 20141023
  Receipt Date: 20141126
  Transmission Date: 20150529
  Serious: Yes (Other)
  Sender: FDA-Public Use
  Company Number: US-JNJFOC-20141010661

PATIENT
  Sex: Female

DRUGS (2)
  1. CANFOSFAMIDE [Suspect]
     Active Substance: CANFOSFAMIDE
     Indication: OVARIAN CANCER
     Route: 042
  2. DOXORUBICIN HYDROCHLORIDE. [Suspect]
     Active Substance: DOXORUBICIN HYDROCHLORIDE
     Indication: OVARIAN CANCER
     Route: 042

REACTIONS (27)
  - Vomiting [Unknown]
  - Leukocytosis [Unknown]
  - Fatigue [Unknown]
  - Infusion site pain [Unknown]
  - Neuropathy peripheral [Unknown]
  - Stomatitis [Unknown]
  - Anaemia [Unknown]
  - Dry skin [Unknown]
  - Flushing [Unknown]
  - Nausea [Unknown]
  - Palmar-plantar erythrodysaesthesia syndrome [Unknown]
  - Mucosal inflammation [Unknown]
  - Pruritus [Unknown]
  - Pain in extremity [Unknown]
  - Dermatitis [Unknown]
  - Alopecia [Unknown]
  - Thrombocytopenia [Unknown]
  - Pyrexia [Unknown]
  - Gingivitis [Unknown]
  - Pigmentation disorder [Unknown]
  - Leukopenia [Unknown]
  - Neutropenia [Unknown]
  - Diarrhoea [Unknown]
  - Febrile neutropenia [Unknown]
  - Rash [Unknown]
  - Drug hypersensitivity [Unknown]
  - Erythema [Unknown]
